FAERS Safety Report 20404704 (Version 1)
Quarter: 2022Q1

REPORT INFORMATION
  Report Type: Report from Study
  Country: IT (occurrence: IT)
  Receive Date: 20220131
  Receipt Date: 20220131
  Transmission Date: 20220423
  Serious: Yes (Hospitalization)
  Sender: FDA-Public Use
  Company Number: None

PATIENT
  Age: 7 Year
  Sex: Male
  Weight: 30 kg

DRUGS (2)
  1. METHOTREXATE [Suspect]
     Active Substance: METHOTREXATE
     Indication: Acute lymphocytic leukaemia
     Route: 037
     Dates: start: 20211009, end: 20211018
  2. THIOGUANINE ANHYDROUS [Suspect]
     Active Substance: THIOGUANINE ANHYDROUS
     Indication: Acute lymphocytic leukaemia
     Route: 042
     Dates: start: 20211006, end: 20211018

REACTIONS (3)
  - Pyrexia [Recovering/Resolving]
  - Neutropenia [Recovering/Resolving]
  - Erythropenia [Recovering/Resolving]

NARRATIVE: CASE EVENT DATE: 20211026
